FAERS Safety Report 24782098 (Version 1)
Quarter: 2024Q4

REPORT INFORMATION
  Report Type: Spontaneous
  Country: US (occurrence: US)
  Receive Date: 20241227
  Receipt Date: 20241227
  Transmission Date: 20250114
  Serious: Yes (Other)
  Sender: TAIHO ONCOLOGY INC
  Company Number: US-Taiho Oncology Inc-2024-012262

PATIENT
  Age: 68 Year
  Sex: Male

DRUGS (1)
  1. LYTGOBI [Suspect]
     Active Substance: FUTIBATINIB
     Indication: Cholangiocarcinoma
     Route: 048

REACTIONS (2)
  - Acute kidney injury [Recovering/Resolving]
  - Hyperphosphataemia [Recovering/Resolving]
